FAERS Safety Report 8247045-1 (Version None)
Quarter: 2012Q1

REPORT INFORMATION
  Report Type: 
  Country: None (occurrence: None)
  Receive Date: 20120330
  Receipt Date: 20120316
  Transmission Date: 20120608
  Serious: Yes (Death, Other)
  Sender: FDA-Public Use
  Company Number: JP-ROCHE-1036534

PATIENT
  Sex: Male
  Weight: 52 kg

DRUGS (9)
  1. TAMIFLU [Suspect]
     Indication: INFLUENZA
     Route: 048
     Dates: start: 20120106, end: 20120107
  2. PURSENNID [Concomitant]
     Indication: CONSTIPATION
     Route: 048
     Dates: start: 20060201, end: 20120106
  3. AKINETON [Concomitant]
     Indication: PARKINSONISM
     Route: 048
     Dates: start: 20120106
  4. LITHIUM CARBONATE [Concomitant]
     Indication: MANIA
     Route: 048
     Dates: start: 20110517, end: 20120106
  5. PREDNISOLONE [Concomitant]
     Indication: ACROMEGALY
     Route: 048
     Dates: start: 20120106
  6. VOLTAREN [Concomitant]
     Indication: PYREXIA
     Route: 054
     Dates: start: 20120106, end: 20120107
  7. HALOPERIDOL [Concomitant]
     Indication: SCHIZOPHRENIA
     Route: 048
     Dates: start: 20120106
  8. LEVOTHYROXINE SODIUM [Concomitant]
     Indication: HYPOTHYROIDISM
     Route: 048
     Dates: start: 20120106
  9. VOLTAREN [Concomitant]
     Route: 054
     Dates: start: 20120108

REACTIONS (8)
  - SHOCK [None]
  - SEPSIS [None]
  - RHABDOMYOLYSIS [None]
  - RASH [None]
  - LOSS OF CONSCIOUSNESS [None]
  - PNEUMONIA [None]
  - CEREBRAL INFARCTION [None]
  - RESPIRATORY ARREST [None]
